FAERS Safety Report 15430630 (Version 1)
Quarter: 2018Q3

REPORT INFORMATION
  Report Type: Report from Study
  Country: IT (occurrence: IT)
  Receive Date: 20180926
  Receipt Date: 20180926
  Transmission Date: 20181010
  Serious: Yes (Hospitalization)
  Sender: FDA-Public Use
  Company Number: IT-JNJFOC-20180925268

PATIENT
  Age: 17 Year
  Sex: Male
  Weight: 44.3 kg

DRUGS (2)
  1. HUMIRA [Concomitant]
     Active Substance: ADALIMUMAB
     Route: 065
     Dates: start: 20120124
  2. REMICADE [Suspect]
     Active Substance: INFLIXIMAB
     Indication: CROHN^S DISEASE
     Route: 042
     Dates: start: 20110222, end: 20111227

REACTIONS (1)
  - Crohn^s disease [Recovered/Resolved]

NARRATIVE: CASE EVENT DATE: 20170206
